FAERS Safety Report 8914393 (Version 2)
Quarter: 2012Q4

REPORT INFORMATION
  Report Type: 
  Country: JP (occurrence: JP)
  Receive Date: 20121119
  Receipt Date: 20121214
  Transmission Date: 20130627
  Serious: No
  Sender: FDA-Public Use
  Company Number: JP-JNJFOC-20121102956

PATIENT
  Age: 42 Year
  Sex: Female

DRUGS (3)
  1. DUROTEP MT [Suspect]
     Indication: PAIN
     Dosage: two 12.5 ug/hr
     Route: 062
  2. DUROTEP MT [Suspect]
     Indication: PAIN
     Route: 062
  3. SEVERAL UNSPECIFIED MEDICATIONS [Concomitant]
     Indication: COLLAGEN DISORDER
     Route: 065

REACTIONS (3)
  - Nausea [Recovering/Resolving]
  - Drug effect decreased [Unknown]
  - Drug prescribing error [Unknown]
